FAERS Safety Report 4340644-9 (Version None)
Quarter: 2004Q2

REPORT INFORMATION
  Report Type: 
  Country: None (occurrence: None)
  Receive Date: 20040413
  Receipt Date: 20040401
  Transmission Date: 20050107
  Serious: Yes (Hospitalization)
  Sender: FDA-Public Use
  Company Number: US-JNJFOC-20040400432

PATIENT
  Age: 31 Year
  Sex: Female
  Weight: 72.5755 kg

DRUGS (4)
  1. INFLIXIMAB (INFLIXIMAB, RECOMBINANT, LYOPHILIZED POWDER) [Suspect]
     Indication: CROHN'S DISEASE
  2. MESALAMINE (MESALAZINE) [Concomitant]
  3. ANTIBIOTICS [Concomitant]
  4. PREDNISONE [Concomitant]

REACTIONS (3)
  - ABDOMINAL PAIN [None]
  - FISTULA [None]
  - POST PROCEDURAL HAEMORRHAGE [None]
